FAERS Safety Report 16908099 (Version 3)
Quarter: 2020Q3

REPORT INFORMATION
  Report Type: Spontaneous
  Country: BE (occurrence: BE)
  Receive Date: 20191011
  Receipt Date: 20200711
  Transmission Date: 20201102
  Serious: Yes (Other)
  Sender: FDA-Public Use
  Company Number: BE-TAKEDA-2019TUS056020

PATIENT
  Age: 5 Year
  Sex: Male

DRUGS (1)
  1. VELCADE [Suspect]
     Active Substance: BORTEZOMIB
     Indication: AUTOIMMUNE HAEMOLYTIC ANAEMIA
     Dosage: UNK
     Route: 065

REACTIONS (7)
  - Hepatic enzyme increased [Unknown]
  - Product use in unapproved indication [Unknown]
  - Transaminases increased [Unknown]
  - Diarrhoea [Unknown]
  - Off label use [Unknown]
  - Leukopenia [Unknown]
  - Gastrointestinal stoma output increased [Unknown]
